FAERS Safety Report 17224866 (Version 1)
Quarter: 2020Q1

REPORT INFORMATION
  Report Type: Spontaneous
  Country: US (occurrence: US)
  Receive Date: 20200102
  Receipt Date: 20200102
  Transmission Date: 20200409
  Serious: Yes (Other)
  Sender: FDA-Public Use
  Company Number: US-PFIZER INC-2019561931

PATIENT

DRUGS (1)
  1. XANAX [Suspect]
     Active Substance: ALPRAZOLAM
     Dosage: 1 MG, 1X/DAY

REACTIONS (5)
  - Ocular hyperaemia [Unknown]
  - Near death experience [Unknown]
  - Seizure [Unknown]
  - Euphoric mood [Unknown]
  - Tremor [Unknown]
